FAERS Safety Report 7471179-2 (Version None)
Quarter: 2011Q2

REPORT INFORMATION
  Report Type: 
  Country: None (occurrence: None)
  Receive Date: 20110510
  Receipt Date: 20110426
  Transmission Date: 20111010
  Serious: Yes (Hospitalization)
  Sender: FDA-Public Use
  Company Number: JP-GENENTECH-317987

PATIENT
  Sex: Male
  Weight: 63 kg

DRUGS (10)
  1. KIPRES [Concomitant]
     Indication: PRODUCT USED FOR UNKNOWN INDICATION
     Dosage: 10 MG, UNK
     Dates: start: 20090207
  2. SULTANOL [Concomitant]
     Indication: PRODUCT USED FOR UNKNOWN INDICATION
     Dosage: UNK
     Dates: start: 20090205, end: 20100819
  3. XOLAIR [Suspect]
     Indication: ASTHMA
     Dosage: 300 MG, Q4W
     Route: 058
     Dates: start: 20090806
  4. XOLAIR [Suspect]
     Dosage: 300 MG, Q4W
     Route: 058
     Dates: start: 20091008
  5. THEO-DUR [Concomitant]
     Indication: PRODUCT USED FOR UNKNOWN INDICATION
     Dosage: 600 MG, UNK
     Dates: start: 20090207
  6. ZITHROMAX [Concomitant]
     Indication: PRODUCT USED FOR UNKNOWN INDICATION
     Dosage: UNK
     Dates: start: 20100122, end: 20100124
  7. ZITHROMAX [Concomitant]
     Dosage: 2 G, UNK
     Dates: start: 20100122, end: 20100124
  8. ADOAIR [Concomitant]
     Indication: PRODUCT USED FOR UNKNOWN INDICATION
     Dosage: UNK
     Dates: start: 20090207
  9. PREDONINE [Concomitant]
     Indication: PRODUCT USED FOR UNKNOWN INDICATION
  10. CLARITH [Concomitant]
     Indication: PRODUCT USED FOR UNKNOWN INDICATION

REACTIONS (2)
  - INFECTION [None]
  - ASTHMA [None]
